FAERS Safety Report 5726054-8 (Version None)
Quarter: 2008Q2

REPORT INFORMATION
  Report Type: 
  Country: None (occurrence: None)
  Receive Date: 20080501
  Receipt Date: 20080501
  Transmission Date: 20081010
  Serious: Yes (Other)
  Sender: FDA-Public Use
  Company Number: None

PATIENT
  Age: 50 Year
  Sex: Female
  Weight: 68.0396 kg

DRUGS (1)
  1. POLYETHYLENE GLYCOL 3350 [Suspect]
     Indication: INTESTINAL POLYP
     Dosage: 17GM QD PO
     Route: 048
     Dates: start: 20080424, end: 20080428

REACTIONS (4)
  - ABDOMINAL PAIN [None]
  - ANORECTAL DISCOMFORT [None]
  - CRYING [None]
  - PHARMACEUTICAL PRODUCT COMPLAINT [None]
